FAERS Safety Report 7938319-X (Version None)
Quarter: 2011Q4

REPORT INFORMATION
  Report Type: 
  Country: None (occurrence: None)
  Receive Date: 20111123
  Receipt Date: 20111115
  Transmission Date: 20120403
  Serious: Yes (Hospitalization, Other)
  Sender: FDA-Public Use
  Company Number: GB-ABBOTT-11P-167-0874270-00

PATIENT
  Sex: Female

DRUGS (7)
  1. CO-DYDRAMOL [Concomitant]
     Indication: PRODUCT USED FOR UNKNOWN INDICATION
  2. AMITRIPTYLINE HCL [Concomitant]
     Indication: PRODUCT USED FOR UNKNOWN INDICATION
  3. OXYCODONE HCL [Concomitant]
     Indication: PRODUCT USED FOR UNKNOWN INDICATION
     Dosage: PRN
  4. HUMIRA [Suspect]
     Indication: RHEUMATOID ARTHRITIS
     Route: 058
     Dates: start: 20061016
  5. PREDNISOLONE [Concomitant]
     Indication: PRODUCT USED FOR UNKNOWN INDICATION
  6. KETOPROTEIN [Concomitant]
     Indication: PRODUCT USED FOR UNKNOWN INDICATION
  7. OXYCONTIN [Concomitant]
     Indication: PRODUCT USED FOR UNKNOWN INDICATION

REACTIONS (4)
  - ANAL ABSCESS [None]
  - INFLAMMATION [None]
  - MASS [None]
  - RECTAL DISCHARGE [None]
